FAERS Safety Report 8078695-3 (Version None)
Quarter: 2012Q1

REPORT INFORMATION
  Report Type: 
  Country: None (occurrence: None)
  Receive Date: 20120124
  Receipt Date: 20120110
  Transmission Date: 20120608
  Serious: Yes (Other)
  Sender: FDA-Public Use
  Company Number: 2012AP000067

PATIENT
  Age: 18 Year
  Sex: Female

DRUGS (4)
  1. LAMOTRIGINE [Suspect]
     Indication: EPILEPSY
     Dosage: 200 MG;PO;BID
     Dates: start: 20101101
  2. LORATADINE [Concomitant]
  3. ETONOGESTREL (ETONOGESTREL) [Suspect]
     Dosage: SD
     Dates: start: 20110301
  4. DOXYCYCLINE [Concomitant]

REACTIONS (3)
  - DRUG INTERACTION [None]
  - EPILEPSY [None]
  - CONDITION AGGRAVATED [None]
